FAERS Safety Report 12645422 (Version 1)
Quarter: 2016Q3

REPORT INFORMATION
  Report Type: Spontaneous
  Country: US (occurrence: US)
  Receive Date: 20160811
  Receipt Date: 20160811
  Transmission Date: 20161109
  Serious: No
  Sender: FDA-Public Use
  Company Number: US-JAZZ-2016-US-004567

PATIENT
  Sex: Female

DRUGS (15)
  1. SEROQUEL [Concomitant]
     Active Substance: QUETIAPINE FUMARATE
  2. XYREM [Suspect]
     Active Substance: SODIUM OXYBATE
     Dosage: 4.5 G, BID
     Route: 048
     Dates: start: 201312
  3. PILOCARPINE HCL [Concomitant]
     Active Substance: PILOCARPINE HYDROCHLORIDE
  4. ETODOLAC. [Concomitant]
     Active Substance: ETODOLAC
  5. VITAMIN B12 [Concomitant]
     Active Substance: CYANOCOBALAMIN
  6. XYREM [Suspect]
     Active Substance: SODIUM OXYBATE
     Indication: NARCOLEPSY
     Dosage: 2 G, BID
     Route: 048
     Dates: start: 201103, end: 201104
  7. XYREM [Suspect]
     Active Substance: SODIUM OXYBATE
     Dosage: DOSE ADJUSTMENTS
     Route: 048
  8. PREVACID [Concomitant]
     Active Substance: LANSOPRAZOLE
  9. BACLOFEN. [Concomitant]
     Active Substance: BACLOFEN
  10. CRANBERRY CONCENTRATE [Concomitant]
     Active Substance: CRANBERRY CONCENTRATE
  11. KLONOPIN [Concomitant]
     Active Substance: CLONAZEPAM
  12. LEVETIRACETAM. [Concomitant]
     Active Substance: LEVETIRACETAM
  13. PROVIGIL [Concomitant]
     Active Substance: MODAFINIL
  14. PROZAC [Concomitant]
     Active Substance: FLUOXETINE HYDROCHLORIDE
  15. WELLBUTRIN [Concomitant]
     Active Substance: BUPROPION HYDROCHLORIDE

REACTIONS (4)
  - Cystitis [Not Recovered/Not Resolved]
  - Pleurisy [Unknown]
  - Pulmonary congestion [Unknown]
  - Urinary tract infection [Not Recovered/Not Resolved]
